FAERS Safety Report 14195450 (Version 1)
Quarter: 2017Q4

REPORT INFORMATION
  Report Type: Spontaneous
  Country: US (occurrence: None)
  Receive Date: 20171116
  Receipt Date: 20171116
  Transmission Date: 20180321
  Serious: Yes (Hospitalization)
  Sender: FDA-Public Use
  Company Number: None

PATIENT
  Age: 68 Year
  Sex: Male

DRUGS (2)
  1. CLOZAPINE. [Suspect]
     Active Substance: CLOZAPINE
     Indication: BIPOLAR I DISORDER
     Route: 048
     Dates: start: 20171031, end: 20171114
  2. CLOZAPINE. [Suspect]
     Active Substance: CLOZAPINE
     Indication: SCHIZOAFFECTIVE DISORDER
     Route: 048
     Dates: start: 20171031, end: 20171114

REACTIONS (8)
  - Electrocardiogram Q wave abnormal [None]
  - Nausea [None]
  - Vomiting [None]
  - Cardiomyopathy [None]
  - Viral myocarditis [None]
  - Troponin increased [None]
  - Electrocardiogram ST segment elevation [None]
  - Myocarditis [None]

NARRATIVE: CASE EVENT DATE: 20171114
